FAERS Safety Report 6237833-5 (Version None)
Quarter: 2009Q2

REPORT INFORMATION
  Report Type: 
  Country: None (occurrence: None)
  Receive Date: 20090618
  Receipt Date: 20090608
  Transmission Date: 20091009
  Serious: Yes (Hospitalization)
  Sender: FDA-Public Use
  Company Number: KV200900657

PATIENT
  Age: 56 Year
  Sex: Female
  Weight: 77.6 kg

DRUGS (6)
  1. MORPHINE SULFATE [Suspect]
     Indication: PAIN
     Dosage: 60 MG, BID, ORAL
     Route: 048
     Dates: end: 20080518
  2. HYDROCHLOROTHIAZIDE [Concomitant]
  3. SIMVASTATIN (SIMVASTATIN) [Concomitant]
  4. LISINOPRIL [Concomitant]
  5. LEXAPRO [Concomitant]
  6. PERCOCET [Concomitant]

REACTIONS (15)
  - ACCIDENTAL OVERDOSE [None]
  - ACUTE PRERENAL FAILURE [None]
  - AMNESIA [None]
  - DEHYDRATION [None]
  - DISORIENTATION [None]
  - DYSARTHRIA [None]
  - DYSKINESIA [None]
  - FAECAL INCONTINENCE [None]
  - FATIGUE [None]
  - HYPOTENSION [None]
  - RENAL PAIN [None]
  - SOMNOLENCE [None]
  - THIRST [None]
  - TREMOR [None]
  - URINARY INCONTINENCE [None]
